FAERS Safety Report 21935814 (Version 1)
Quarter: 2023Q1

REPORT INFORMATION
  Report Type: Spontaneous
  Country: IT (occurrence: IT)
  Receive Date: 20230201
  Receipt Date: 20230201
  Transmission Date: 20230418
  Serious: Yes (Hospitalization)
  Sender: FDA-Public Use
  Company Number: None

PATIENT
  Age: 56 Year
  Sex: Female

DRUGS (9)
  1. METHOTREXATE [Suspect]
     Active Substance: METHOTREXATE
     Indication: Arthritis
     Dosage: 7.5 MG WEEKLY
     Route: 058
     Dates: start: 201506
  2. FOLIC ACID [Suspect]
     Active Substance: FOLIC ACID
     Indication: Prophylaxis
     Dosage: 5 MG TO BE TAKEN DAY AFTER METHOTREXATE INJECTION
     Route: 048
     Dates: start: 201506
  3. HYDROXYCHLOROQUINE [Concomitant]
     Active Substance: HYDROXYCHLOROQUINE
     Indication: Systemic lupus erythematosus
     Dosage: 200 MG PER DAY
     Route: 048
     Dates: start: 201501
  4. PREDNISONE [Concomitant]
     Active Substance: PREDNISONE
     Indication: Systemic lupus erythematosus
     Dosage: AT THE TIME OF THE AE SHE WAS TAKING 12.5 MG/DAY
     Route: 048
     Dates: start: 19700101
  5. PANTOPRAZOLE [Concomitant]
     Active Substance: PANTOPRAZOLE
     Indication: Gastric disorder
     Dosage: 40 MG/DAY
     Route: 048
  6. PHENYTOIN [Concomitant]
     Active Substance: PHENYTOIN
     Indication: Epilepsy
     Dosage: 250 MG
     Route: 048
     Dates: start: 1993
  7. CHOLECALCIFEROL [Concomitant]
     Active Substance: CHOLECALCIFEROL
     Indication: Osteoporosis
     Dosage: AT TIME OF REACTION 25000 U EVERY 15 DAYS
     Route: 048
  8. ALPRAZOLAM [Concomitant]
     Active Substance: ALPRAZOLAM
     Indication: Anxiety
     Dosage: 0.5 MG/DAY
     Route: 048
  9. WARFARIN [Concomitant]
     Active Substance: WARFARIN
     Indication: Mitral valve replacement
     Dosage: ACCORDING TO TARGET INR (2.5-3.5)
     Route: 048
     Dates: start: 201105

REACTIONS (2)
  - Arterial thrombosis [Recovered/Resolved]
  - Hyperhomocysteinaemia [Recovered/Resolved]

NARRATIVE: CASE EVENT DATE: 20150601
